FAERS Safety Report 14182480 (Version 3)
Quarter: 2018Q1

REPORT INFORMATION
  Report Type: Spontaneous
  Country: US (occurrence: US)
  Receive Date: 20171113
  Receipt Date: 20180307
  Transmission Date: 20180508
  Serious: Yes (Hospitalization)
  Sender: FDA-Public Use
  Company Number: US-PFIZER INC-2017482274

PATIENT
  Age: 70 Year
  Sex: Male
  Weight: 85.28 kg

DRUGS (2)
  1. XANAX [Suspect]
     Active Substance: ALPRAZOLAM
     Dosage: 1 TO 1.5 TABLETS ONCE A DAY AT NIGHT
     Route: 048
  2. XANAX [Suspect]
     Active Substance: ALPRAZOLAM
     Indication: INSOMNIA
     Dosage: 0.5 MG, 1X/DAY (HALF OF A 1MG TABLET AT NIGHT)
     Route: 048
     Dates: start: 1997

REACTIONS (3)
  - Intentional product use issue [Unknown]
  - Drug ineffective for unapproved indication [Unknown]
  - Somnolence [Unknown]
